FAERS Safety Report 9504769 (Version 1)
Quarter: 2013Q3

REPORT INFORMATION
  Report Type: Report from Study
  Country: GB (occurrence: GB)
  Receive Date: 20130906
  Receipt Date: 20130906
  Transmission Date: 20140515
  Serious: Yes (Death)
  Sender: FDA-Public Use
  Company Number: PHHO2013GB011545

PATIENT
  Sex: 0

DRUGS (1)
  1. DICLOFENAC [Suspect]
     Indication: OSTEOARTHRITIS
     Dosage: 50 MG, UNK
     Route: 048

REACTIONS (1)
  - Myocardial ischaemia [Fatal]
